FAERS Safety Report 8609797-8 (Version None)
Quarter: 2012Q3

REPORT INFORMATION
  Report Type: 
  Country: None (occurrence: None)
  Receive Date: 20120821
  Receipt Date: 20120815
  Transmission Date: 20120928
  Serious: Yes (Other)
  Sender: FDA-Public Use
  Company Number: CHPA2012US015716

PATIENT
  Age: 59 Year
  Sex: Female

DRUGS (4)
  1. ATENOLOL [Concomitant]
     Dosage: UNK, UNK
  2. EXCEDRIN EXTRA STRENGTH CAPLETS [Suspect]
     Indication: DENTAL DISCOMFORT
     Dosage: 1 OR 2 DF, PRN
     Route: 048
     Dates: start: 19960101, end: 20060101
  3. EXCEDRIN EXTRA STRENGTH CAPLETS [Suspect]
     Dosage: 1 OR 2 DF, PRN
     Route: 048
     Dates: start: 20050101, end: 20060101
  4. IBUPROFEN [Concomitant]
     Dosage: UNK, UNK

REACTIONS (5)
  - UNDERDOSE [None]
  - ULCER [None]
  - DYSPEPSIA [None]
  - CEREBROVASCULAR ACCIDENT [None]
  - OFF LABEL USE [None]
